FAERS Safety Report 5206857-9 (Version None)
Quarter: 2007Q1

REPORT INFORMATION
  Report Type: 
  Country: None (occurrence: None)
  Receive Date: 20070109
  Receipt Date: 20061227
  Transmission Date: 20070707
  Serious: Yes (Other)
  Sender: FDA-Public Use
  Company Number: 234657

PATIENT
  Age: 62 Year
  Sex: Female
  Weight: 88 kg

DRUGS (1)
  1. HERCEPTIN [Suspect]
     Indication: BREAST CANCER
     Dosage: 375 ML, INTRAVENOUS
     Route: 042
     Dates: start: 20060110

REACTIONS (5)
  - BLOOD CREATINE PHOSPHOKINASE INCREASED [None]
  - CARDIAC FAILURE [None]
  - MUSCULAR WEAKNESS [None]
  - MYALGIA [None]
  - VASCULITIS [None]
